FAERS Safety Report 17953339 (Version 4)
Quarter: 2020Q3

REPORT INFORMATION
  Report Type: Spontaneous
  Country: US (occurrence: US)
  Receive Date: 20200628
  Receipt Date: 20200930
  Transmission Date: 20201103
  Serious: No
  Sender: FDA-Public Use
  Company Number: US-GLAXOSMITHKLINE-US2020AMR109120

PATIENT
  Sex: Female

DRUGS (3)
  1. ZEJULA [Suspect]
     Active Substance: NIRAPARIB
     Indication: OVARIAN CANCER
     Dosage: 300 MG, QD, QPM
     Dates: start: 20200612
  2. ZEJULA [Suspect]
     Active Substance: NIRAPARIB
     Dosage: 200 MG, QD
  3. ZEJULA [Suspect]
     Active Substance: NIRAPARIB
     Dosage: 200 MG, QD
     Dates: start: 20200718

REACTIONS (12)
  - Insomnia [Unknown]
  - Palpitations [Recovering/Resolving]
  - Pyrexia [Unknown]
  - Heart rate increased [Unknown]
  - Platelet count abnormal [Unknown]
  - Anaemia [Unknown]
  - Nausea [Recovering/Resolving]
  - Blood glucose increased [Not Recovered/Not Resolved]
  - Sleep disorder [Unknown]
  - Ill-defined disorder [Unknown]
  - Headache [Unknown]
  - Platelet count decreased [Unknown]
